FAERS Safety Report 7979021-8 (Version None)
Quarter: 2011Q4

REPORT INFORMATION
  Report Type: 
  Country: None (occurrence: None)
  Receive Date: 20111202
  Receipt Date: 20111117
  Transmission Date: 20120403
  Serious: Yes (Hospitalization)
  Sender: FDA-Public Use
  Company Number: 2011VX003436

PATIENT
  Age: 49 Year
  Sex: Female
  Weight: 59 kg

DRUGS (13)
  1. FENTANYL [Concomitant]
  2. NICOTINE [Concomitant]
  3. MORPHINE SULFATE [Concomitant]
  4. DHE-45 ^VALEANT^ [Suspect]
     Indication: HEADACHE
     Dosage: 1 MG; ;IVBOL
     Route: 040
  5. AMANTADINE HCL [Concomitant]
  6. ACETAMINOPHEN AND HYDROCODONE BITARTRATE [Concomitant]
  7. NATALIZUMAB [Concomitant]
  8. LORAZEPAM [Concomitant]
  9. GABAPENTIN [Concomitant]
  10. VERAPAMIL SUSTAINED [Concomitant]
  11. RLEASE TABLETS [Concomitant]
  12. DULOXETINE HYDROCHLORIDE [Concomitant]
  13. HALOPERIDOL [Concomitant]

REACTIONS (3)
  - TROPONIN I INCREASED [None]
  - MITRAL VALVE INCOMPETENCE [None]
  - PRINZMETAL ANGINA [None]
